FAERS Safety Report 21841735 (Version 3)
Quarter: 2023Q1

REPORT INFORMATION
  Report Type: Report from Study
  Country: US (occurrence: US)
  Receive Date: 20230110
  Receipt Date: 20230325
  Transmission Date: 20230417
  Serious: No
  Sender: FDA-Public Use
  Company Number: US-002147023-NVSC2023US004480

PATIENT
  Sex: Female

DRUGS (1)
  1. KESIMPTA [Suspect]
     Active Substance: OFATUMUMAB
     Indication: Relapsing multiple sclerosis
     Dosage: 20 MG, QMO
     Route: 058
     Dates: start: 20220611

REACTIONS (4)
  - Conjunctivitis [Recovering/Resolving]
  - COVID-19 [Unknown]
  - Gastroenteritis viral [Unknown]
  - Upper respiratory tract infection [Recovering/Resolving]
